FAERS Safety Report 23233250 (Version 2)
Quarter: 2023Q4

REPORT INFORMATION
  Report Type: Spontaneous
  Country: US (occurrence: US)
  Receive Date: 20231128
  Receipt Date: 20231130
  Transmission Date: 20240109
  Serious: No
  Sender: FDA-Public Use
  Company Number: US-ABBVIE-5516273

PATIENT
  Sex: Female

DRUGS (2)
  1. IMBRUVICA [Suspect]
     Active Substance: IBRUTINIB
     Indication: Product used for unknown indication
     Dosage: TAKE 3 TABLETS BY MOUTH ONCE DAILY?FORM STRENGTH-140 MILLIGRAM
     Route: 048
     Dates: start: 20210901
  2. IMBRUVICA [Suspect]
     Active Substance: IBRUTINIB
     Indication: Product used for unknown indication
     Dosage: CAPSULES SHOULD BE TAKEN WITH A GLASS OF WATER
     Route: 048

REACTIONS (1)
  - Memory impairment [Unknown]
